FAERS Safety Report 19082737 (Version 1)
Quarter: 2021Q2

REPORT INFORMATION
  Report Type: Spontaneous
  Country: KR (occurrence: KR)
  Receive Date: 20210401
  Receipt Date: 20210401
  Transmission Date: 20210717
  Serious: Yes (Hospitalization, Other)
  Sender: FDA-Public Use
  Company Number: KR-LUPIN PHARMACEUTICALS INC.-2021-04028

PATIENT
  Age: 53 Year
  Sex: Female

DRUGS (9)
  1. CYANOACRYLATE [Suspect]
     Active Substance: OCRYLATE
     Indication: GASTRIC VARICES HAEMORRHAGE
     Dosage: UNK (FOUR INJECTIONS OF 1ML, 1ML, 0.5ML AND 1ML EACH (TOTAL 3.5ML) WITH MIXTURE OF ETHIODIZED OIL; O
     Route: 065
  2. CYANOACRYLATE [Suspect]
     Active Substance: OCRYLATE
     Dosage: UNK (TWO INJECTION WITH MIXTURE OF ETHIODIZED OIL 1ML AND 0.5ML EACH; ON 11 MARCH)
     Route: 065
  3. LIPIODOL [Suspect]
     Active Substance: ETHIODIZED OIL
     Indication: GASTRIC VARICES HAEMORRHAGE
     Dosage: UNK (FOUR INJECTIONS OF 1ML, 1ML, 0.5ML AND 1ML EACH (TOTAL 3.5ML) WITH MIXTURE OF CYANOACRYLATE; ON
     Route: 065
  4. CEFTRIAXONE. [Suspect]
     Active Substance: CEFTRIAXONE
     Indication: ANTIBIOTIC PROPHYLAXIS
     Dosage: 2 GRAM, QD
     Route: 065
  5. LIPIODOL [Suspect]
     Active Substance: ETHIODIZED OIL
     Dosage: UNK (ONE INJECTION WITH MIXTURE OF CYANOACRYLATE; ON 07 MARCH)
     Route: 065
  6. CYANOACRYLATE [Suspect]
     Active Substance: OCRYLATE
     Dosage: UNK (ONE INJECTION WITH MIXTURE OF ETHIODIZED OIL; ON 07 MARCH)
     Route: 065
  7. TERLIPRESSIN [Concomitant]
     Active Substance: TERLIPRESSIN
     Indication: GASTRIC VARICES HAEMORRHAGE
     Dosage: UNK
     Route: 042
  8. LIPIODOL [Suspect]
     Active Substance: ETHIODIZED OIL
     Dosage: UNK (TWO INJECTIONS WITH MIXTURE OF CYANOACRYLATE 1ML AND 0.5ML EACH; ON 11 MARCH)
     Route: 065
  9. LEVOFLOXACIN. [Suspect]
     Active Substance: LEVOFLOXACIN
     Indication: ANTIBIOTIC PROPHYLAXIS
     Dosage: UNK
     Route: 065

REACTIONS (2)
  - Candida infection [Recovered/Resolved]
  - Fungaemia [Recovered/Resolved]
